FAERS Safety Report 19755882 (Version 1)
Quarter: 2021Q3

REPORT INFORMATION
  Report Type: Spontaneous
  Country: US (occurrence: US)
  Receive Date: 20210827
  Receipt Date: 20210827
  Transmission Date: 20211014
  Serious: No
  Sender: FDA-Public Use
  Company Number: US-PFIZER INC-2021008337

PATIENT
  Age: 43 Year
  Sex: Male
  Weight: 68.04 kg

DRUGS (1)
  1. LYRICA [Suspect]
     Active Substance: PREGABALIN
     Indication: NERVE INJURY
     Dosage: 100 MG, 4X/DAY

REACTIONS (3)
  - Circumstance or information capable of leading to medication error [Unknown]
  - Nervousness [Unknown]
  - Depressed mood [Unknown]
